FAERS Safety Report 9769049 (Version 1)
Quarter: 2013Q4

REPORT INFORMATION
  Report Type: Report from Study
  Country: US (occurrence: US)
  Receive Date: 20131218
  Receipt Date: 20131218
  Transmission Date: 20140711
  Serious: Yes (Death, Hospitalization)
  Sender: FDA-Public Use
  Company Number: US-ROCHE-1322076

PATIENT
  Age: 59 Year
  Sex: Female
  Weight: 49.94 kg

DRUGS (17)
  1. AVASTIN [Suspect]
     Indication: COLON CANCER
     Route: 042
     Dates: start: 20130201
  2. AVASTIN [Suspect]
     Route: 042
     Dates: start: 20130313, end: 20130410
  3. AVASTIN [Suspect]
     Route: 042
     Dates: start: 20130410
  4. ELOXATIN [Concomitant]
     Route: 042
     Dates: start: 20130227, end: 20130410
  5. ELOXATIN [Concomitant]
     Route: 042
     Dates: start: 20130410
  6. KEPPRA [Concomitant]
     Indication: CONVULSION
     Route: 048
     Dates: start: 20130508
  7. 5-FU [Concomitant]
     Route: 042
     Dates: start: 20130227, end: 20130410
  8. 5-FU [Concomitant]
     Route: 042
     Dates: start: 20130410
  9. ALOXI [Concomitant]
     Route: 042
     Dates: start: 20130227
  10. CALCIUM GLUCONATE [Concomitant]
     Route: 042
     Dates: start: 20130227
  11. DEXAMETHASONE SODIUM PHOSPHATE [Concomitant]
     Route: 042
     Dates: start: 20130227
  12. FUSILEV [Concomitant]
     Route: 042
     Dates: start: 20130227, end: 20130410
  13. FUSILEV [Concomitant]
     Route: 042
     Dates: start: 20130410
  14. MAGNESIUM SULFATE [Concomitant]
     Route: 042
     Dates: start: 20130227
  15. NEULASTA [Concomitant]
     Route: 065
     Dates: start: 20130424
  16. POTASSIUM CHLORIDE [Concomitant]
     Route: 065
     Dates: start: 20130424
  17. PROMETHAZINE [Concomitant]
     Route: 065
     Dates: start: 20130424

REACTIONS (4)
  - Death [Fatal]
  - Convulsion [Unknown]
  - Back pain [Unknown]
  - Abdominal pain [Unknown]
